FAERS Safety Report 9276041 (Version 1)
Quarter: 2012Q4

REPORT INFORMATION
  Report Type: Spontaneous
  Country: US (occurrence: None)
  Receive Date: 20121109
  Receipt Date: 20121109
  Transmission Date: 20130627
  Serious: Yes (Death)
  Sender: FDA-Public Use
  Company Number: 2012S1000427

PATIENT
  Age: 79 Year
  Sex: Male

DRUGS (8)
  1. CUBICIN [Suspect]
     Indication: OSTEOMYELITIS
     Route: 042
     Dates: start: 20100629, end: 20100705
  2. CUBICIN [Suspect]
     Indication: STAPHYLOCOCCAL BACTEREMIA
     Route: 042
     Dates: start: 20100629, end: 20100705
  3. CARVEDILOL [Concomitant]
  4. CLOPIDOGREL [Concomitant]
  5. HEPARIN [Concomitant]
  6. INSULIN ASPART [Concomitant]
  7. LANSOPRAZOLE [Concomitant]
  8. PIPERACILLIN / TAZOBACTAM [Concomitant]

REACTIONS (1)
  - Respiratory failure [None]
